FAERS Safety Report 24007176 (Version 1)
Quarter: 2024Q2

REPORT INFORMATION
  Report Type: Spontaneous
  Country: IT (occurrence: IT)
  Receive Date: 20240624
  Receipt Date: 20240624
  Transmission Date: 20240716
  Serious: Yes (Other)
  Sender: FDA-Public Use
  Company Number: None

PATIENT
  Age: 57 Year
  Sex: Male
  Weight: 51 kg

DRUGS (2)
  1. CISPLATIN [Suspect]
     Active Substance: CISPLATIN
     Indication: Bladder cancer
     Dosage: 65MG EVERY 21 DAYS,CISPLATINO
     Route: 042
     Dates: start: 20240516, end: 20240516
  2. GEMCITABINE [Suspect]
     Active Substance: GEMCITABINE
     Indication: Bladder cancer
     Dosage: 1500MG DAYS 1 AND 8 OF A 21 DAY CYCLE, GEMCITABINA
     Route: 042
     Dates: start: 20240516, end: 20240523

REACTIONS (1)
  - Neutropenia [Not Recovered/Not Resolved]

NARRATIVE: CASE EVENT DATE: 20240605
